FAERS Safety Report 9426357 (Version 3)
Quarter: 2013Q3

REPORT INFORMATION
  Report Type: Spontaneous
  Country: DE (occurrence: DE)
  Receive Date: 20130730
  Receipt Date: 20130813
  Transmission Date: 20140515
  Serious: Yes (Death, Hospitalization, Other)
  Sender: FDA-Public Use
  Company Number: DE-AMGEN-DEUSP2013052213

PATIENT
  Age: 69 Year
  Sex: Female
  Weight: 85 kg

DRUGS (21)
  1. VECTIBIX [Suspect]
     Indication: PRODUCT USED FOR UNKNOWN INDICATION
     Dosage: 6 MG/KG, 1D, EVERY 14 D, 1 LINE ROUTE OF ADMINISTRATION
     Route: 065
     Dates: start: 20130612, end: 20130723
  2. VECTIBIX [Suspect]
     Dosage: UNK
     Route: 065
  3. VECTIBIX [Suspect]
     Dosage: UNK
     Route: 065
  4. VECTIBIX [Suspect]
     Dosage: UNK
     Route: 065
  5. ERYTHROMYCIN [Suspect]
     Indication: PRODUCT USED FOR UNKNOWN INDICATION
     Dosage: UNK UNK, QD, DERMAL ROUTE
     Route: 065
     Dates: start: 20130611
  6. DOXYCYCLINE [Suspect]
     Indication: PRODUCT USED FOR UNKNOWN INDICATION
     Dosage: 100 MG, 2/D
     Route: 065
     Dates: start: 20130627
  7. OXALIPLATIN [Concomitant]
     Indication: COLON CANCER
     Dosage: 85 MG/M2, UNK
     Dates: start: 20130612, end: 20130711
  8. OXALIPLATIN [Concomitant]
     Indication: METASTASES TO LIVER
  9. OXALIPLATIN [Concomitant]
     Indication: METASTASES TO PERITONEUM
  10. ONCOFOLIC [Concomitant]
     Indication: COLON CANCER
     Dosage: 400 MG/M2, UNK
     Dates: start: 20130612, end: 20130711
  11. ONCOFOLIC [Concomitant]
     Indication: METASTASES TO LIVER
  12. ONCOFOLIC [Concomitant]
     Indication: METASTASES TO PERITONEUM
  13. 5-FU                               /00098801/ [Concomitant]
     Indication: COLON CANCER
     Dosage: 400 MG/M2, UNK
     Route: 040
     Dates: start: 20130612
  14. 5-FU                               /00098801/ [Concomitant]
     Indication: METASTASES TO LIVER
     Dosage: 600 MG/M2, UNK
     Dates: start: 20130612, end: 20130711
  15. 5-FU                               /00098801/ [Concomitant]
     Indication: METASTASES TO PERITONEUM
  16. NEXIUM-MUPS                        /01479302/ [Concomitant]
     Dosage: UNK
  17. CITALOPRAM [Concomitant]
     Dosage: UNK
  18. NEBIVOLOL [Concomitant]
     Dosage: UNK
  19. ALLOPURINOL [Concomitant]
     Dosage: UNK
  20. CARMEN                             /00740901/ [Concomitant]
     Dosage: UNK
  21. SIMVASTATIN [Concomitant]
     Dosage: UNK

REACTIONS (18)
  - Renal failure acute [Fatal]
  - Vomiting [Unknown]
  - Syncope [Unknown]
  - Nausea [Unknown]
  - Haematochezia [Unknown]
  - Hyponatraemia [Unknown]
  - Hypotension [Unknown]
  - General physical health deterioration [Unknown]
  - Gastric ulcer [Unknown]
  - Colitis [Unknown]
  - Anal stenosis [Unknown]
  - Stomatitis [Unknown]
  - Mucosal inflammation [Unknown]
  - Hypertension [Unknown]
  - Decreased appetite [Unknown]
  - Hyperuricaemia [Unknown]
  - Back pain [Unknown]
  - Type 2 diabetes mellitus [Unknown]
